FAERS Safety Report 15898990 (Version 1)
Quarter: 2019Q1

REPORT INFORMATION
  Report Type: Spontaneous
  Country: US (occurrence: US)
  Receive Date: 20190201
  Receipt Date: 20190201
  Transmission Date: 20190417
  Serious: Yes (Other)
  Sender: FDA-Public Use
  Company Number: US-GLAXOSMITHKLINE-US2018236989

PATIENT
  Age: 57 Year
  Sex: Female
  Weight: 113 kg

DRUGS (28)
  1. LEVOTHYROXINE. [Concomitant]
     Active Substance: LEVOTHYROXINE
     Indication: PRODUCT USED FOR UNKNOWN INDICATION
     Dosage: 1 DF, QD
     Route: 048
     Dates: start: 20181001
  2. MOMETASONE [Concomitant]
     Active Substance: MOMETASONE
     Indication: PRODUCT USED FOR UNKNOWN INDICATION
     Dosage: UNK
     Route: 065
  3. INFLUENZA [Concomitant]
     Active Substance: INFLUENZA VIRUS VACCINE
     Dosage: (INFLUENZA INJECTABLE QUADRIVALENT, PRESERVATIVE FREE)
     Route: 065
     Dates: start: 20171009
  4. COLECALCIFEROL [Concomitant]
     Active Substance: CHOLECALCIFEROL
     Indication: PRODUCT USED FOR UNKNOWN INDICATION
     Dosage: 1 DF, QD
     Route: 065
  5. INFLUENZA [Concomitant]
     Active Substance: INFLUENZA VIRUS VACCINE
     Dosage: (INFLUENZA INJECTABLE QUADRIVALENT, PRESERVATIVE FREE)
     Route: 065
     Dates: start: 20181016
  6. LANSOPRAZOLE. [Concomitant]
     Active Substance: LANSOPRAZOLE
     Indication: PRODUCT USED FOR UNKNOWN INDICATION
     Dosage: 1 DF, BID, BY MOUTH, FOR 30 DAYS
     Route: 048
     Dates: start: 20180907
  7. PEPTO-BISMOL [Concomitant]
     Active Substance: BISMUTH SUBSALICYLATE
     Indication: PRODUCT USED FOR UNKNOWN INDICATION
     Dosage: UNK UNK, PRN
     Route: 065
  8. TETANUS AND DIPHTHERIA TOXOIDS ADSORBED (VACCINE) [Concomitant]
     Active Substance: CLOSTRIDIUM TETANI\CLOSTRIDIUM TETANI TOXOID ANTIGEN (FORMALDEHYDE INACTIVATED)\CORYNEBACTERIUM DIPHTHERIAE\CORYNEBACTERIUM DIPHTHERIAE TOXOID ANTIGEN (FORMALDEHYDE INACTIVATED)
     Indication: PRODUCT USED FOR UNKNOWN INDICATION
     Dosage: (PRESERVATIVE FREE)
     Route: 030
     Dates: start: 20100330
  9. CITALOPRAM [Concomitant]
     Active Substance: CITALOPRAM HYDROBROMIDE
     Indication: PRODUCT USED FOR UNKNOWN INDICATION
     Dosage: 1 DF, QD (10, MG, TAKE ONE TABLET BY MOUTH )
     Route: 048
     Dates: start: 20181029
  10. PNEUMOCOCCAL VACCINE POLYVALENT NOS [Concomitant]
     Active Substance: PNEUMOCOCCAL VACCINE POLYVALENT
     Dosage: 0.15 ML, (PNEUMOCOCCAL CONJUGATE (PCV 13))
     Route: 030
     Dates: start: 20161118
  11. DICLOFENAC [Suspect]
     Active Substance: DICLOFENAC
     Indication: PRODUCT USED FOR UNKNOWN INDICATION
     Dosage: 2 G, TID (APPLY 2 GRAMS TO THE AFFECTED AREA (S) BY TOPICAL ROUTE 4 TIME  A DAY)
     Route: 061
     Dates: start: 20180427
  12. CITALOPRAM [Concomitant]
     Active Substance: CITALOPRAM HYDROBROMIDE
     Dosage: 1 DF, QD (20, MG, TAKE ONE TABLET BY MOUTH )
     Route: 048
     Dates: start: 20181016
  13. INFLUENZA [Concomitant]
     Active Substance: INFLUENZA VIRUS VACCINE
     Indication: PRODUCT USED FOR UNKNOWN INDICATION
     Dosage: (INFLUENZA SEASONAL INJECTABLE)
     Route: 030
     Dates: start: 20111204
  14. INFLUENZA [Concomitant]
     Active Substance: INFLUENZA VIRUS VACCINE
     Dosage: (INFLUENZA INJECTABLE QUADRIVALENT, PRESERVATIVE FREE)
     Route: 065
     Dates: start: 20151026
  15. INFLUENZA [Concomitant]
     Active Substance: INFLUENZA VIRUS VACCINE
     Dosage: (INFLUENZA INJECTABLE QUADRIVALENT, PRESERVATIVE FREE)
     Route: 065
     Dates: start: 20161109
  16. METFORMIN [Concomitant]
     Active Substance: METFORMIN HYDROCHLORIDE
     Indication: PRODUCT USED FOR UNKNOWN INDICATION
     Dosage: 3 DF, QD, BY MOUTH
     Route: 048
     Dates: start: 20180830
  17. PROAIR RESPICLICK [Concomitant]
     Active Substance: ALBUTEROL SULFATE
     Indication: PRODUCT USED FOR UNKNOWN INDICATION
     Dosage: 2 DF, Q4H AS NEEDED
     Route: 055
     Dates: start: 20180409
  18. ASCORBIC ACID + BETACAROTENE + COPPER OXIDE + RETINOL + TOCOPHERYL ACE [Concomitant]
     Indication: PRODUCT USED FOR UNKNOWN INDICATION
     Dosage: 1 DF, QD
     Route: 065
  19. INFLUENZA [Concomitant]
     Active Substance: INFLUENZA VIRUS VACCINE
     Dosage: (INFLUENZA SEASONAL INJECTABLE)
     Route: 065
     Dates: start: 20131022
  20. COSENTYX [Suspect]
     Active Substance: SECUKINUMAB
     Indication: PSORIASIS
     Dosage: 300 MG, UNK (94 WEEKS)
     Route: 058
     Dates: start: 201802
  21. FLUOCINONIDE. [Concomitant]
     Active Substance: FLUOCINONIDE
     Indication: PRODUCT USED FOR UNKNOWN INDICATION
     Dosage: UNK
     Route: 065
  22. INFLUENZA [Concomitant]
     Active Substance: INFLUENZA VIRUS VACCINE
     Dosage: (INFLUENZA SEASONAL INJECTABLE)
     Route: 030
     Dates: start: 20120815
  23. INFLUENZA [Concomitant]
     Active Substance: INFLUENZA VIRUS VACCINE
     Dosage: (INFLUENZA SEASONAL INJECTABLE, PRESERVATIVE FREE)
     Route: 065
     Dates: start: 20141030
  24. PNEUMOCOCCAL VACCINE POLYVALENT NOS [Concomitant]
     Active Substance: PNEUMOCOCCAL VACCINE POLYVALENT
     Indication: PRODUCT USED FOR UNKNOWN INDICATION
     Dosage: 0.15 ML, (PNEUMOCOCCAL POLYSACCHARIDE PPV23)
     Route: 065
     Dates: start: 20151026
  25. COSENTYX [Suspect]
     Active Substance: SECUKINUMAB
     Dosage: 300 MG, UNK (94 WEEKS)
     Route: 058
     Dates: start: 20180716
  26. CLOBETASOL [Concomitant]
     Active Substance: CLOBETASOL
     Indication: PRODUCT USED FOR UNKNOWN INDICATION
     Dosage: UNK
     Route: 061
     Dates: start: 20180810
  27. ESTRACE [Concomitant]
     Active Substance: ESTRADIOL
     Indication: PRODUCT USED FOR UNKNOWN INDICATION
     Dosage: 0.1 MG/G, PRN (AS DIRECTED NIGHTLY FOR TWO WEEKS, THEN MOPN, WED, FRI, TO THE VAGINAL OPENING)
     Route: 067
     Dates: start: 20171213
  28. DIPHTHERIA PERTUSSIS TETANUS VACCINE [Concomitant]
     Indication: PRODUCT USED FOR UNKNOWN INDICATION
     Dosage: UNK
     Route: 030
     Dates: start: 20130408

REACTIONS (5)
  - Colitis microscopic [Recovering/Resolving]
  - Lichen sclerosus [Unknown]
  - Abdominal discomfort [Recovering/Resolving]
  - Inflammatory bowel disease [Recovering/Resolving]
  - Diarrhoea [Recovering/Resolving]

NARRATIVE: CASE EVENT DATE: 20180409
